FAERS Safety Report 7023526-3 (Version None)
Quarter: 2010Q3

REPORT INFORMATION
  Report Type: 
  Country: None (occurrence: None)
  Receive Date: 20100929
  Receipt Date: 20100929
  Transmission Date: 20110219
  Serious: Yes (Hospitalization)
  Sender: FDA-Public Use
  Company Number: None

PATIENT
  Age: 57 Year
  Sex: Male
  Weight: 63 kg

DRUGS (1)
  1. INFLIXIMAB [Suspect]
     Indication: PSORIATIC ARTHROPATHY
     Dosage: 300 MG OTHER IV
     Route: 042
     Dates: start: 20100903, end: 20100903

REACTIONS (8)
  - CELLULITIS [None]
  - LYMPHADENOPATHY [None]
  - NAUSEA [None]
  - PAIN IN EXTREMITY [None]
  - PYREXIA [None]
  - RASH [None]
  - SWELLING [None]
  - VOMITING [None]
